FAERS Safety Report 4919771-0 (Version None)
Quarter: 2006Q1

REPORT INFORMATION
  Report Type: 
  Country: None (occurrence: None)
  Receive Date: 20060216
  Receipt Date: 20060206
  Transmission Date: 20060701
  Serious: Yes (Death, Hospitalization, Disabling, Other)
  Sender: FDA-Public Use
  Company Number: 200610138BNE

PATIENT
  Age: 78 Year
  Sex: Female

DRUGS (11)
  1. MOXIFLOXACIN HCL [Suspect]
     Indication: PNEUMONIA
     Dosage: 400 MG, TOTAL DAILY, ORAL
     Route: 048
     Dates: start: 20060102, end: 20060104
  2. CLOPIDOGREL [Concomitant]
  3. ISMN [Concomitant]
  4. DIGOXIN [Concomitant]
  5. LEVOTHYROXINE SODIUM [Concomitant]
  6. SODIUM CHLORIDE [Concomitant]
  7. PREDNISOLONE [Concomitant]
  8. FRUSEMIDE [Concomitant]
  9. IPRATROPIUM BROMIDE [Concomitant]
  10. SALBUTAMOL [Concomitant]
  11. AMIODARONE [Concomitant]

REACTIONS (3)
  - DIARRHOEA HAEMORRHAGIC [None]
  - MELAENA [None]
  - PULMONARY EMBOLISM [None]
